FAERS Safety Report 7507174-4 (Version None)
Quarter: 2011Q2

REPORT INFORMATION
  Report Type: 
  Country: None (occurrence: None)
  Receive Date: 20110526
  Receipt Date: 20110524
  Transmission Date: 20111010
  Serious: Yes (Hospitalization)
  Sender: FDA-Public Use
  Company Number: CA-ABBOTT-11P-028-0725079-00

PATIENT
  Sex: Male
  Weight: 72.64 kg

DRUGS (5)
  1. PERINDOPRIL ERBUMINE [Concomitant]
     Indication: PRODUCT USED FOR UNKNOWN INDICATION
     Dates: start: 20090101
  2. SYNTHROID [Concomitant]
     Indication: PROPHYLAXIS
  3. HUMIRA [Suspect]
     Indication: PSORIATIC ARTHROPATHY
     Route: 058
     Dates: start: 20081223, end: 20110412
  4. SYNTHROID [Concomitant]
     Indication: THYROID DISORDER
     Dates: start: 20090101
  5. METFORMIN HCL [Concomitant]
     Indication: DIABETES MELLITUS

REACTIONS (5)
  - PAIN [None]
  - BACTERIAL INFECTION [None]
  - HEADACHE [None]
  - FEELING HOT [None]
  - FEELING COLD [None]
